FAERS Safety Report 24575910 (Version 1)
Quarter: 2024Q4

REPORT INFORMATION
  Report Type: Spontaneous
  Country: US (occurrence: None)
  Receive Date: 20241101
  Receipt Date: 20241101
  Transmission Date: 20250115
  Serious: Yes (Hospitalization)
  Sender: Public
  Company Number: None

PATIENT
  Age: 61 Year
  Sex: Female

DRUGS (1)
  1. STELARA [Suspect]
     Active Substance: USTEKINUMAB
     Indication: Crohn^s disease
     Dosage: OTHER FREQUENCY : EVERY 8 WEEKS;?
     Route: 058
     Dates: start: 202403

REACTIONS (9)
  - Sepsis [None]
  - Diarrhoea haemorrhagic [None]
  - Fatigue [None]
  - Crohn^s disease [None]
  - Neck pain [None]
  - Spinal pain [None]
  - Pelvic pain [None]
  - Arthralgia [None]
  - Back pain [None]

NARRATIVE: CASE EVENT DATE: 20240908
